FAERS Safety Report 22532247 (Version 1)
Quarter: 2023Q2

REPORT INFORMATION
  Report Type: Spontaneous
  Country: JP (occurrence: JP)
  Receive Date: 20230607
  Receipt Date: 20230607
  Transmission Date: 20230722
  Serious: Yes (Hospitalization, Other)
  Sender: FDA-Public Use
  Company Number: JP-MSD-M2023-21004

PATIENT
  Age: 88 Year
  Sex: Female

DRUGS (2)
  1. KEYTRUDA [Suspect]
     Active Substance: PEMBROLIZUMAB
     Indication: Uterine cancer
     Dosage: 200 MILLIGRAM, Q3W
     Route: 041
     Dates: start: 20230511, end: 20230511
  2. LENVATINIB MESYLATE [Suspect]
     Active Substance: LENVATINIB MESYLATE
     Indication: Uterine cancer
     Dosage: 20 MILLIGRAM, QD
     Route: 065

REACTIONS (4)
  - Hypothyroidism [Recovered/Resolved]
  - Hypertension [Recovered/Resolved]
  - Proteinuria [Recovered/Resolved]
  - Physical deconditioning [Unknown]

NARRATIVE: CASE EVENT DATE: 20230501
